FAERS Safety Report 7639303-6 (Version None)
Quarter: 2011Q3

REPORT INFORMATION
  Report Type: 
  Country: None (occurrence: None)
  Receive Date: 20110727
  Receipt Date: 20110722
  Transmission Date: 20111222
  Serious: Yes (Death, Life-Threatening, Hospitalization)
  Sender: FDA-Public Use
  Company Number: MX-JNJFOC-20110709888

PATIENT
  Sex: Female
  Weight: 46.5 kg

DRUGS (11)
  1. PLACEBO [Suspect]
     Route: 042
     Dates: start: 20110224
  2. FERROUS SULFATE TAB [Concomitant]
     Indication: ANAEMIA OF CHRONIC DISEASE
     Route: 048
     Dates: start: 20101025
  3. INDOMETHACIN [Concomitant]
     Indication: RHEUMATOID ARTHRITIS
     Route: 048
     Dates: start: 20040101
  4. GOLIMUMAB [Suspect]
     Route: 042
     Dates: start: 20110201
  5. FOLIC ACID [Concomitant]
     Indication: RHEUMATOID ARTHRITIS
     Route: 048
     Dates: start: 19920101
  6. ACETAMINOPHEN [Concomitant]
     Indication: RHEUMATOID ARTHRITIS
     Route: 048
     Dates: start: 20050101
  7. GOLIMUMAB [Suspect]
     Indication: RHEUMATOID ARTHRITIS
     Route: 042
     Dates: start: 20110328
  8. GOLIMUMAB [Suspect]
     Route: 042
     Dates: start: 20101206
  9. PLACEBO [Suspect]
     Indication: RHEUMATOID ARTHRITIS
     Route: 042
     Dates: start: 20110502
  10. GOLIMUMAB [Suspect]
     Route: 042
     Dates: start: 20101109
  11. GOLIMUMAB [Suspect]
     Route: 042
     Dates: start: 20110525

REACTIONS (2)
  - DYSPNOEA [None]
  - CHEST PAIN [None]
